FAERS Safety Report 17209577 (Version 1)
Quarter: 2019Q4

REPORT INFORMATION
  Report Type: Spontaneous
  Country: FR (occurrence: FR)
  Receive Date: 20191227
  Receipt Date: 20191227
  Transmission Date: 20200122
  Serious: Yes (Other)
  Sender: FDA-Public Use
  Company Number: FR-SAMSUNG BIOEPIS-SB-2019-38962

PATIENT
  Age: 40 Year
  Sex: Male

DRUGS (1)
  1. IMRALDI [Suspect]
     Active Substance: ADALIMUMAB
     Indication: PSORIASIS
     Dosage: UNSPECIFIED
     Route: 058
     Dates: start: 201903, end: 20190820

REACTIONS (7)
  - Insomnia [Unknown]
  - Weight increased [Unknown]
  - Anxiety [Unknown]
  - Dyspepsia [Unknown]
  - Sleep disorder [Unknown]
  - Fatigue [Unknown]
  - Feeling abnormal [Unknown]

NARRATIVE: CASE EVENT DATE: 201905
